FAERS Safety Report 9725144 (Version 1)
Quarter: 2013Q4

REPORT INFORMATION
  Report Type: Other
  Country: DE (occurrence: DE)
  Receive Date: 20131203
  Receipt Date: 20131203
  Transmission Date: 20140711
  Serious: Yes (Hospitalization, Other)
  Sender: FDA-Public Use
  Company Number: DE-LUPIN PHARMACEUTICALS INC.-E2B_00001462

PATIENT
  Age: 1 Day
  Sex: Male
  Weight: 2.98 kg

DRUGS (4)
  1. SERTRALINE [Suspect]
     Indication: DEPRESSION
     Route: 064
     Dates: start: 20121001, end: 20130605
  2. LIPROLOG [Suspect]
     Indication: TYPE 1 DIABETES MELLITUS
     Route: 064
     Dates: start: 20121001, end: 20130605
  3. LANTUS [Suspect]
     Indication: TYPE 1 DIABETES MELLITUS
     Route: 064
     Dates: start: 20121001, end: 20130605
  4. L-THYROXIN [Concomitant]
     Indication: HYPOTHYROIDISM
     Route: 064
     Dates: start: 20121001, end: 20130605

REACTIONS (5)
  - Premature baby [Recovering/Resolving]
  - Hyperbilirubinaemia neonatal [Recovered/Resolved]
  - Neonatal respiratory distress syndrome [Recovered/Resolved]
  - Hypoglycaemia neonatal [Recovered/Resolved]
  - Foetal exposure during pregnancy [None]
